FAERS Safety Report 5341513-8 (Version None)
Quarter: 2007Q2

REPORT INFORMATION
  Report Type: 
  Country: None (occurrence: None)
  Receive Date: 20070530
  Receipt Date: 20070510
  Transmission Date: 20071010
  Serious: Yes (Other)
  Sender: FDA-Public Use
  Company Number: 2007JP001818

PATIENT
  Age: 8 Year
  Sex: Male

DRUGS (5)
  1. PROGRAF [Suspect]
  2. CYCLOPHOSPHAMIDE [Concomitant]
  3. METHYIPREDNISOLONE (METHYIPREDNISOLONE) [Concomitant]
  4. PREDNISOLONE [Concomitant]
  5. CYCLOSPORINE [Concomitant]

REACTIONS (4)
  - DISEASE RECURRENCE [None]
  - HISTIOCYTOSIS HAEMATOPHAGIC [None]
  - PNEUMONIA [None]
  - REVERSIBLE POSTERIOR LEUKOENCEPHALOPATHY SYNDROME [None]
